FAERS Safety Report 9865298 (Version 1)
Quarter: 2014Q1

REPORT INFORMATION
  Report Type: Spontaneous
  Country: US (occurrence: US)
  Receive Date: 20140203
  Receipt Date: 20140203
  Transmission Date: 20141002
  Serious: No
  Sender: FDA-Public Use
  Company Number: US-ALLERGAN-1301307US

PATIENT
  Age: 71 Year
  Sex: Female

DRUGS (9)
  1. RESTASIS [Suspect]
     Indication: DRY EYE
     Dosage: 2 GTT, BID
     Route: 047
     Dates: start: 20121026, end: 20121028
  2. BUSPAR [Concomitant]
     Indication: PRODUCT USED FOR UNKNOWN INDICATION
  3. XOPENEX [Concomitant]
     Indication: ASTHMA
  4. ASTHMANEX [Concomitant]
     Indication: ASTHMA
  5. POTASSIUM [Concomitant]
     Indication: PRODUCT USED FOR UNKNOWN INDICATION
  6. DEXASPORIN OINTMENT [Concomitant]
     Indication: PRODUCT USED FOR UNKNOWN INDICATION
  7. OCUSOFT WASH [Concomitant]
     Indication: PRODUCT USED FOR UNKNOWN INDICATION
  8. SYSTANE [Concomitant]
     Indication: PRODUCT USED FOR UNKNOWN INDICATION
  9. THYROID MEDICATION NOS [Concomitant]
     Indication: THYROID DISORDER

REACTIONS (8)
  - Nasal congestion [Recovered/Resolved]
  - Oedema mouth [Recovered/Resolved]
  - Insomnia [Recovered/Resolved]
  - Eye pain [Recovered/Resolved]
  - Eye irritation [Recovered/Resolved]
  - Eye pain [Recovered/Resolved]
  - Eye pain [Recovered/Resolved]
  - Photophobia [Recovered/Resolved]
